FAERS Safety Report 25262856 (Version 1)
Quarter: 2025Q2

REPORT INFORMATION
  Report Type: Spontaneous
  Country: US (occurrence: None)
  Receive Date: 20250501
  Receipt Date: 20250501
  Transmission Date: 20250716
  Serious: Yes (Hospitalization)
  Sender: FDA-CTU
  Company Number: None

PATIENT
  Age: 83 Year
  Sex: Male

DRUGS (1)
  1. APIXABAN [Suspect]
     Active Substance: APIXABAN
     Indication: Pulmonary embolism

REACTIONS (12)
  - Anaemia [None]
  - Troponin increased [None]
  - Brain natriuretic peptide increased [None]
  - Oedema peripheral [None]
  - Red blood cell transfusion [None]
  - Arteriovenous malformation [None]
  - Gastrointestinal mucosal disorder [None]
  - Therapy interrupted [None]
  - Interstitial lung disease [None]
  - Pleural effusion [None]
  - Blood creatinine increased [None]
  - Acute myocardial infarction [None]

NARRATIVE: CASE EVENT DATE: 20250421
